FAERS Safety Report 6086588-6 (Version None)
Quarter: 2009Q1

REPORT INFORMATION
  Report Type: 
  Country: None (occurrence: None)
  Receive Date: 20090223
  Receipt Date: 20090211
  Transmission Date: 20090719
  Serious: Yes (Other)
  Sender: FDA-Public Use
  Company Number: ID-PFIZER INC-2009169032

PATIENT

DRUGS (2)
  1. ZITHROMAX [Suspect]
     Indication: COUGH
     Route: 048
     Dates: start: 20090115, end: 20090117
  2. CIPROFLOXACIN [Concomitant]
     Route: 048
     Dates: end: 20090114

REACTIONS (3)
  - HAEMATURIA [None]
  - HYPOTENSION [None]
  - URTICARIA [None]
